FAERS Safety Report 10986004 (Version 3)
Quarter: 2015Q3

REPORT INFORMATION
  Report Type: Report from Study
  Country: AU (occurrence: AU)
  Receive Date: 20150404
  Receipt Date: 20150713
  Transmission Date: 20151125
  Serious: Yes (Hospitalization, Other)
  Sender: FDA-Public Use
  Company Number: PHHY2015AU037145

PATIENT
  Age: 47 Year
  Sex: Male

DRUGS (2)
  1. GILENYA [Suspect]
     Active Substance: FINGOLIMOD HYDROCHLORIDE
     Indication: MULTIPLE SCLEROSIS
     Dosage: UNK
     Route: 048
     Dates: start: 201203, end: 20150327
  2. VITAMIN D [Concomitant]
     Active Substance: CHOLECALCIFEROL
     Indication: VITAMIN D DEFICIENCY
     Dosage: 1000 IU, QD
     Route: 048

REACTIONS (1)
  - Malignant melanoma [Recovering/Resolving]

NARRATIVE: CASE EVENT DATE: 20150325
